FAERS Safety Report 8841963 (Version 1)
Quarter: 2012Q4

REPORT INFORMATION
  Report Type: Spontaneous
  Country: US (occurrence: None)
  Receive Date: 20121015
  Receipt Date: 20121015
  Transmission Date: 20130627
  Serious: Yes (Other)
  Sender: FDA-Public Use
  Company Number: None

PATIENT
  Age: 83 Year
  Sex: Female
  Weight: 74.84 kg

DRUGS (1)
  1. PLAVIX [Suspect]
     Indication: CORONARY STENT PLACEMENT
     Dosage: 75 mg Daily
     Dates: start: 201107, end: 201207

REACTIONS (1)
  - Urinary incontinence [None]
